FAERS Safety Report 6929786-9 (Version None)
Quarter: 2010Q3

REPORT INFORMATION
  Report Type: 
  Country: None (occurrence: None)
  Receive Date: 20100818
  Receipt Date: 20100804
  Transmission Date: 20110219
  Serious: Yes (Other)
  Sender: FDA-Public Use
  Company Number: PHHY2010SE19085

PATIENT
  Sex: Female

DRUGS (4)
  1. LEPONEX [Suspect]
     Indication: SCHIZOPHRENIA
     Dosage: 400 MG (04 100 MG TABLET)
     Dates: start: 19960201
  2. ZOPICLONE [Concomitant]
     Dosage: 7.5MG TABLET DAILY
     Dates: start: 19960101
  3. NOZINAN [Concomitant]
     Dosage: 25G TABLET ONE TO TWO TABLETS DAILY
     Dates: start: 19960101
  4. DUPHALAC [Concomitant]
     Dosage: 670 MG/ML
     Dates: start: 19960101

REACTIONS (5)
  - B-LYMPHOCYTE COUNT INCREASED [None]
  - LYMPHOCYTE COUNT DECREASED [None]
  - MALAISE [None]
  - PSYCHOTIC DISORDER [None]
  - PYREXIA [None]
